FAERS Safety Report 19293554 (Version 1)
Quarter: 2021Q2

REPORT INFORMATION
  Report Type: Spontaneous
  Country: US (occurrence: US)
  Receive Date: 20210524
  Receipt Date: 20210524
  Transmission Date: 20210717
  Serious: Yes (Other)
  Sender: FDA-Public Use
  Company Number: US-GLAXOSMITHKLINE-US2021GSK109268

PATIENT
  Sex: Female

DRUGS (6)
  1. RANITIDINE. [Suspect]
     Active Substance: RANITIDINE
     Indication: GASTRIC DISORDER
     Dosage: UNK, SOMETIMES DAILY, SOMETIMES WEEKLY
     Route: 065
     Dates: start: 199001, end: 201901
  2. RANITIDINE. [Suspect]
     Active Substance: RANITIDINE
     Indication: GASTRIC DISORDER
     Dosage: UNK, SOMETIMES DAILY, SOMETIMES WEEKLY
     Route: 065
     Dates: start: 199001, end: 201901
  3. RANITIDINE CAPSULE [Suspect]
     Active Substance: RANITIDINE
     Indication: GASTRIC DISORDER
     Dosage: UNK, SOMETIMES DAILY, SOMETIMES WEEKLY
     Route: 065
     Dates: start: 199001, end: 201901
  4. ZANTAC [Suspect]
     Active Substance: RANITIDINE HYDROCHLORIDE
     Indication: GASTRIC DISORDER
     Dosage: UNK, SOMETIMES DAILY, SOMETIMES WEEKLY
     Route: 065
     Dates: start: 199001, end: 201910
  5. RANITIDINE. [Suspect]
     Active Substance: RANITIDINE
     Indication: GASTRIC DISORDER
     Dosage: UNK, SOMETIMES DAILY, SOMETIMES WEEKLY
     Route: 065
     Dates: start: 199001, end: 201901
  6. ZANTAC [Suspect]
     Active Substance: RANITIDINE HYDROCHLORIDE
     Indication: GASTRIC DISORDER
     Dosage: UNK, SOMETIMES DAILY, SOMETIMES WEEKLY
     Route: 065
     Dates: start: 199001, end: 201910

REACTIONS (1)
  - Breast cancer [Unknown]
